FAERS Safety Report 5406104-9 (Version None)
Quarter: 2007Q3

REPORT INFORMATION
  Report Type: 
  Country: None (occurrence: None)
  Receive Date: 20070806
  Receipt Date: 20070726
  Transmission Date: 20080115
  Serious: Yes (Death, Hospitalization)
  Sender: FDA-Public Use
  Company Number: IL-ROCHE-497950

PATIENT
  Age: 70 Year
  Sex: Male
  Weight: 67 kg

DRUGS (15)
  1. GANCICLOVIR SODIUM [Suspect]
     Indication: GLIOMA
     Route: 042
     Dates: start: 20060706, end: 20060719
  2. CEREPRO [Suspect]
     Indication: GLIOMA
     Dosage: REPORTED AS SINGLE
     Route: 018
     Dates: start: 20060702, end: 20060702
  3. PHENYTOIN SODIUM [Concomitant]
     Dates: start: 20060702
  4. RANITIDINE [Concomitant]
     Dates: start: 20060702
  5. HEPARIN-FRACTION, SODIUM SALT [Concomitant]
     Dates: start: 20060703
  6. LACTULOSE [Concomitant]
     Dates: start: 20060702
  7. AMLODIPINE [Concomitant]
     Dates: start: 20060713
  8. CEFTAZIDIME [Concomitant]
     Dates: start: 20060709
  9. VANCOMYCIN [Concomitant]
     Dates: start: 20060709
  10. ACETYLCYSTEINE [Concomitant]
     Dates: start: 20060711
  11. ENALAPRIL MALEATE [Concomitant]
     Dates: start: 20060625
  12. SIMVASTIN [Concomitant]
     Dates: start: 20060625
  13. LAMOTRIGINE [Concomitant]
     Dates: start: 20060625
  14. DEXAMETHASONE 0.5MG TAB [Concomitant]
     Dates: start: 20060625
  15. INSULIN [Concomitant]
     Dates: start: 20060625

REACTIONS (1)
  - PNEUMONIA ASPIRATION [None]
